FAERS Safety Report 9656135 (Version 1)
Quarter: 2013Q4

REPORT INFORMATION
  Report Type: Spontaneous
  Country: FR (occurrence: FR)
  Receive Date: 20131030
  Receipt Date: 20131030
  Transmission Date: 20140711
  Serious: Yes (Hospitalization)
  Sender: FDA-Public Use
  Company Number: PHHY2013FR120898

PATIENT
  Age: 63 Year
  Sex: Female

DRUGS (14)
  1. CERTICAN [Suspect]
     Dosage: UNK
     Route: 048
     Dates: start: 20121025
  2. CERTICAN [Suspect]
     Dosage: 2 MG (MORNING) AND 1.75 MG (EVENING)
     Route: 048
     Dates: start: 200301, end: 20130721
  3. CELLCEPT [Concomitant]
     Dosage: UNK UKN, UNK
     Dates: end: 201301
  4. CORTANCYL [Concomitant]
     Dosage: UNK
  5. CORTANCYL [Concomitant]
     Dosage: 15 MG, PER DAY
  6. APROVEL [Concomitant]
     Dosage: UNK
  7. LASILIX [Concomitant]
     Dosage: UNK
  8. SECTRAL [Concomitant]
     Dosage: UNK
  9. TAHOR [Concomitant]
     Dosage: UNK
  10. KARDEGIC [Concomitant]
     Dosage: UNK
  11. LEVOTHYROX [Concomitant]
     Dosage: UNK
  12. CORTICOSTEROIDS [Concomitant]
     Dosage: 10.5 MG, PER DAY
  13. CORTICOSTEROIDS [Concomitant]
     Dosage: 40 MG, PER DAY
     Dates: start: 20130717
  14. PROGRAF [Concomitant]
     Dosage: UNK
     Dates: start: 20130717

REACTIONS (1)
  - Lung disorder [Recovering/Resolving]
